FAERS Safety Report 24404988 (Version 2)
Quarter: 2024Q4

REPORT INFORMATION
  Report Type: Spontaneous
  Country: US (occurrence: US)
  Receive Date: 20241007
  Receipt Date: 20241009
  Transmission Date: 20250115
  Serious: Yes (Life-Threatening, Other)
  Sender: PFIZER
  Company Number: US-PFIZER INC-PV202400128397

PATIENT
  Sex: Male

DRUGS (4)
  1. PAMIDRONATE DISODIUM [Suspect]
     Active Substance: PAMIDRONATE DISODIUM
     Indication: Arteriosclerosis
     Dosage: 0.1 MG/KG/DOSE, WEEKLY, ON DAY 17
     Route: 042
  2. PAMIDRONATE DISODIUM [Suspect]
     Active Substance: PAMIDRONATE DISODIUM
     Dosage: INCREASED TO 0.2-0.3 MG/KG/DOSE FOR TOTAL 7 DOSES
  3. DIAZOXIDE [Concomitant]
     Active Substance: DIAZOXIDE
     Indication: Hypoglycaemia
     Dosage: UNK
  4. DEXTROSE [Concomitant]
     Active Substance: DEXTROSE MONOHYDRATE
     Indication: Hypoglycaemia
     Dosage: UNK
     Route: 042

REACTIONS (3)
  - Aortic arteriosclerosis [Unknown]
  - Arteriosclerosis [Unknown]
  - Disease progression [Unknown]
